FAERS Safety Report 11676985 (Version 3)
Quarter: 2016Q2

REPORT INFORMATION
  Report Type: Report from Study
  Country: BR (occurrence: BR)
  Receive Date: 20151028
  Receipt Date: 20160419
  Transmission Date: 20160815
  Serious: Yes (Hospitalization, Other)
  Sender: FDA-Public Use
  Company Number: BR-ELI_LILLY_AND_COMPANY-BR201503005686

PATIENT
  Sex: Female
  Weight: 43 kg

DRUGS (1)
  1. FORTEO [Suspect]
     Active Substance: TERIPARATIDE
     Indication: PRODUCT USED FOR UNKNOWN INDICATION
     Dosage: 1 DF, QD
     Route: 058
     Dates: start: 20141117

REACTIONS (14)
  - Pneumonia [Recovered/Resolved]
  - Peripheral swelling [Unknown]
  - Dengue fever [Recovered/Resolved]
  - Decreased appetite [Unknown]
  - Cholelithiasis [Unknown]
  - Asthenia [Unknown]
  - Weight increased [Not Recovered/Not Resolved]
  - Anaemia [Unknown]
  - Wound [Not Recovered/Not Resolved]
  - Inflammation [Unknown]
  - Abscess bacterial [Not Recovered/Not Resolved]
  - Bronchitis [Unknown]
  - Weight decreased [Unknown]
  - Immunodeficiency [Unknown]

NARRATIVE: CASE EVENT DATE: 2015
